FAERS Safety Report 8758915 (Version 2)
Quarter: 2012Q4

REPORT INFORMATION
  Report Type: 
  Country: DE (occurrence: DE)
  Receive Date: 20120829
  Receipt Date: 20120830
  Transmission Date: 20130627
  Serious: Yes (Other)
  Sender: FDA-Public Use
  Company Number: DE-ASTRAZENECA-2012SE58143

PATIENT

DRUGS (1)
  1. EMLA CREME [Suspect]
     Route: 061

REACTIONS (3)
  - Dyspnoea [Unknown]
  - Dizziness [Unknown]
  - Hypersensitivity [Recovered/Resolved]
